FAERS Safety Report 9280524 (Version 1)
Quarter: 2013Q1

REPORT INFORMATION
  Report Type: Spontaneous
  Country: US (occurrence: None)
  Receive Date: 20130301
  Receipt Date: 20130301
  Transmission Date: 20140127
  Serious: Yes (Life-Threatening, Other)
  Sender: FDA-Public Use
  Company Number: 20130063

PATIENT
  Age: 60 Year
  Sex: Female

DRUGS (1)
  1. LIDOCAINE HCL INJECTION, USP (0625-25) 10 MG/ML [Suspect]
     Indication: ANALGESIC THERAPY
     Dosage: INTRAPLEURAL?
     Route: 034

REACTIONS (5)
  - Cardiac arrest [None]
  - Grand mal convulsion [None]
  - Accidental overdose [None]
  - Pulseless electrical activity [None]
  - Medication error [None]
